FAERS Safety Report 10444231 (Version 3)
Quarter: 2014Q3

REPORT INFORMATION
  Report Type: Spontaneous
  Country: DE (occurrence: DE)
  Receive Date: 20140910
  Receipt Date: 20140924
  Transmission Date: 20150326
  Serious: Yes (Death, Other)
  Sender: FDA-Public Use
  Company Number: DE-DRREDDYS-GER/GER/14/0042948

PATIENT
  Age: 49 Year
  Sex: Female
  Weight: 68 kg

DRUGS (10)
  1. VALDOXAN [Suspect]
     Active Substance: AGOMELATINE
     Indication: DEPRESSION
     Dates: start: 20130403, end: 20130515
  2. ATOSIL [Interacting]
     Active Substance: PROMETHAZINE HYDROCHLORIDE
     Indication: DEPRESSION
     Dates: start: 20130403, end: 20130515
  3. ZOPICLONE [Suspect]
     Active Substance: ZOPICLONE
     Indication: SLEEP DISORDER
     Dosage: 300
     Dates: start: 20130403, end: 20130515
  4. ZOPICLONE [Suspect]
     Active Substance: ZOPICLONE
     Route: 048
     Dates: start: 20130513, end: 20130513
  5. OMEPRAZOLE. [Interacting]
     Active Substance: OMEPRAZOLE
     Indication: PRODUCT USED FOR UNKNOWN INDICATION
     Dates: start: 20130403, end: 20130515
  6. SERTRALINE [Suspect]
     Active Substance: SERTRALINE HYDROCHLORIDE
     Indication: DEPRESSION
     Dates: start: 20130403, end: 20130515
  7. LEVOTHYROXINE SODIUM. [Interacting]
     Active Substance: LEVOTHYROXINE SODIUM
     Indication: THYROID DISORDER
     Dates: start: 20130403, end: 20130515
  8. OLANZAPINE. [Interacting]
     Active Substance: OLANZAPINE
     Indication: DEPRESSION
     Dates: start: 20130403, end: 20130515
  9. LYRICA [Interacting]
     Active Substance: PREGABALIN
     Indication: DEPRESSION
     Dates: start: 20130403, end: 20130515
  10. DOXEPIN 20 [Interacting]
     Active Substance: DOXEPIN
     Indication: DEPRESSION
     Dates: start: 20130403, end: 20130515

REACTIONS (3)
  - Overdose [Fatal]
  - Completed suicide [Fatal]
  - Drug interaction [Unknown]

NARRATIVE: CASE EVENT DATE: 20130516
